FAERS Safety Report 16797541 (Version 1)
Quarter: 2019Q3

REPORT INFORMATION
  Report Type: Spontaneous
  Country: US (occurrence: US)
  Receive Date: 20190912
  Receipt Date: 20190912
  Transmission Date: 20191005
  Serious: Yes (Death)
  Sender: FDA-Public Use
  Company Number: US-BEH-2019106586

PATIENT
  Age: 67 Year
  Sex: Male
  Weight: 76.6 kg

DRUGS (6)
  1. HUMAN IMMUNOGLOBULIN (INN) [Suspect]
     Active Substance: HUMAN IMMUNOGLOBULIN G
     Dosage: 500 MILLIGRAM/KILOGRAM, 97 HOURS POST OP
     Route: 042
  2. MYCOPHENOLATE [Concomitant]
     Active Substance: MYCOPHENOLIC ACID
     Route: 065
  3. HUMAN IMMUNOGLOBULIN (INN) [Suspect]
     Active Substance: HUMAN IMMUNOGLOBULIN G
     Indication: TRANSPLANT REJECTION
     Dosage: 200 MILLIGRAM/KILOGRAM, 48 HOURS POST OP
     Route: 042
  4. PROTHROMBIN COMPLEX CONCENTRATE NOS [Suspect]
     Active Substance: COAGULATION FACTOR IX HUMAN\COAGULATION FACTOR VII HUMAN\COAGULATION FACTOR X HUMAN\PROTHROMBIN
     Indication: HAEMORRHAGE
     Route: 065
  5. HUMAN IMMUNOGLOBULIN (INN) [Suspect]
     Active Substance: HUMAN IMMUNOGLOBULIN G
     Dosage: 200 MILLIGRAM/KILOGRAM, 145 HOURS POST OP
     Route: 042
  6. ANTITHYMOCYTE IMMUNOGLOBULIN [Concomitant]
     Active Substance: THYMOCYTE IMMUNE GLOBULIN NOS
     Route: 065

REACTIONS (10)
  - Peripheral artery occlusion [Fatal]
  - Intracardiac thrombus [Fatal]
  - Myocardial infarction [Fatal]
  - Aortic thrombosis [Fatal]
  - Drug ineffective for unapproved indication [Fatal]
  - Peripheral ischaemia [Fatal]
  - Multiple organ dysfunction syndrome [Fatal]
  - Venous thrombosis [Fatal]
  - Product use in unapproved indication [Fatal]
  - Thrombosis [Fatal]
